FAERS Safety Report 6254016-3 (Version None)
Quarter: 2009Q3

REPORT INFORMATION
  Report Type: 
  Country: None (occurrence: None)
  Receive Date: 20090702
  Receipt Date: 20090622
  Transmission Date: 20100115
  Serious: Yes (Hospitalization)
  Sender: FDA-Public Use
  Company Number: US-ROCHE-639607

PATIENT
  Sex: Male

DRUGS (8)
  1. CAPECITABINE [Suspect]
     Route: 048
     Dates: start: 20080908, end: 20090611
  2. CAPECITABINE [Suspect]
     Dosage: DOSE REDUCED
     Route: 048
  3. BEVACIZUMAB [Suspect]
     Dosage: FREQUENCY: D1-D15
     Route: 042
     Dates: start: 20080908, end: 20090611
  4. OXALIPLATIN [Suspect]
     Dosage: FREQUENCY: D1-D15
     Route: 042
     Dates: start: 20080908, end: 20090611
  5. GLYBURIDE [Concomitant]
  6. SIMVASTATIN [Concomitant]
  7. DIOVAN [Concomitant]
  8. NORVASC [Concomitant]
     Dosage: DRUG: NORVASC 10.

REACTIONS (4)
  - BLOOD BILIRUBIN INCREASED [None]
  - LARGE INTESTINAL OBSTRUCTION [None]
  - NAUSEA [None]
  - VOMITING [None]
